FAERS Safety Report 11905878 (Version 1)
Quarter: 2016Q1

REPORT INFORMATION
  Report Type: Spontaneous
  Country: US (occurrence: None)
  Receive Date: 20160108
  Receipt Date: 20160108
  Transmission Date: 20160526
  Serious: Yes (Death, Life-Threatening, Hospitalization, Disabling, Other)
  Sender: FDA-Public Use
  Company Number: None

PATIENT
  Sex: Female
  Weight: 97.52 kg

DRUGS (3)
  1. WOMEN^S 50+ [Concomitant]
  2. CALCIUM [Concomitant]
     Active Substance: CALCIUM
  3. XARELTO [Suspect]
     Active Substance: RIVAROXABAN
     Indication: ANTICOAGULANT THERAPY
     Route: 048
     Dates: start: 201311, end: 20140405

REACTIONS (5)
  - Abdominal pain upper [None]
  - Blindness [None]
  - Epistaxis [None]
  - Paraesthesia [None]
  - Vision blurred [None]
